FAERS Safety Report 4854910-1 (Version None)
Quarter: 2005Q4

REPORT INFORMATION
  Report Type: 
  Country: None (occurrence: None)
  Receive Date: 20051128
  Receipt Date: 20051003
  Transmission Date: 20060501
  Serious: Yes (Other)
  Sender: FDA-Public Use
  Company Number: 217730

PATIENT
  Age: 26 Year
  Sex: Male
  Weight: 124.7392 kg

DRUGS (4)
  1. RAPTIVA [Suspect]
     Indication: PSORIASIS
     Route: 065
     Dates: start: 20050727, end: 20050817
  2. UVB PHOTOTHERAPY (PHOTOTHERAPY UVB) [Concomitant]
  3. CELEBREX [Concomitant]
  4. VICODIN [Concomitant]

REACTIONS (1)
  - HAEMOLYTIC ANAEMIA [None]
